FAERS Safety Report 7650474-8 (Version None)
Quarter: 2011Q3

REPORT INFORMATION
  Report Type: 
  Country: None (occurrence: None)
  Receive Date: 20110802
  Receipt Date: 20110125
  Transmission Date: 20111222
  Serious: Yes (Hospitalization)
  Sender: FDA-Public Use
  Company Number: US-GLAXOSMITHKLINE-A0910483A

PATIENT
  Age: 80 Year
  Sex: Female

DRUGS (1)
  1. ROSIGLITAZONE MALEATE [Suspect]
     Indication: DIABETES MELLITUS
     Dosage: 4MG PER DAY
     Route: 048
     Dates: start: 20040527, end: 20070601

REACTIONS (4)
  - CORONARY ARTERY BYPASS [None]
  - BACK PAIN [None]
  - CARDIAC VALVE DISEASE [None]
  - TRANSIENT ISCHAEMIC ATTACK [None]
